FAERS Safety Report 14957779 (Version 1)
Quarter: 2018Q2

REPORT INFORMATION
  Report Type: Spontaneous
  Country: US (occurrence: US)
  Receive Date: 20180531
  Receipt Date: 20180531
  Transmission Date: 20180711
  Serious: No
  Sender: FDA-Public Use
  Company Number: US-SA-2018SA143457

PATIENT
  Age: 62 Year
  Sex: Female
  Weight: 99.79 kg

DRUGS (11)
  1. STERILE WATER [Concomitant]
     Active Substance: WATER
     Dosage: 1 EACH
     Route: 042
     Dates: start: 20180503
  2. FABRAZYME [Suspect]
     Active Substance: AGALSIDASE BETA
     Dosage: 20 MG, QOW
     Route: 041
  3. ELIQUIS [Concomitant]
     Active Substance: APIXABAN
     Dosage: 1 DF, BID
     Route: 048
     Dates: start: 20180427
  4. TYLENOL [Concomitant]
     Active Substance: ACETAMINOPHEN
     Dosage: 2 DF, PRN
     Route: 048
     Dates: start: 20180427
  5. HYDROCHLOROTHIAZIDE. [Concomitant]
     Active Substance: HYDROCHLOROTHIAZIDE
     Dosage: 1 DF, QD
     Route: 048
     Dates: start: 20180424
  6. EPINEPHRINE. [Concomitant]
     Active Substance: EPINEPHRINE
     Indication: ANAPHYLACTIC REACTION
     Dosage: 0.3 MG, PRN
     Route: 030
     Dates: start: 20180503
  7. HEPARIN [Concomitant]
     Active Substance: HEPARIN SODIUM
     Indication: FLUSHING
     Dosage: UNK100UN/ML
     Route: 042
     Dates: start: 20180503
  8. NORMAL SALINE [Concomitant]
     Active Substance: SODIUM CHLORIDE
     Dosage: 0.9 %, UNK
     Route: 042
     Dates: start: 20180503
  9. SODIUM CHLORIDE. [Concomitant]
     Active Substance: SODIUM CHLORIDE
     Indication: FLUSHING
     Dosage: 0.9 %
     Route: 042
     Dates: start: 20180503
  10. SOTALOL. [Concomitant]
     Active Substance: SOTALOL
     Dosage: 1 DF, BID
     Route: 048
     Dates: start: 20180427
  11. BENICAR [Concomitant]
     Active Substance: OLMESARTAN MEDOXOMIL
     Dosage: 1 DF, QD
     Route: 048
     Dates: start: 20180427

REACTIONS (1)
  - Upper respiratory tract infection [Unknown]
